FAERS Safety Report 15839334 (Version 1)
Quarter: 2019Q1

REPORT INFORMATION
  Report Type: Report from Study
  Country: US (occurrence: US)
  Receive Date: 20190117
  Receipt Date: 20190117
  Transmission Date: 20190417
  Serious: Yes (Other)
  Sender: FDA-Public Use
  Company Number: US-ALEXION PHARMACEUTICALS INC.-A201900603

PATIENT
  Sex: Male

DRUGS (2)
  1. SOLIRIS [Suspect]
     Active Substance: ECULIZUMAB
     Indication: MYASTHENIA GRAVIS
     Route: 065
  2. ZITHROMAX [Suspect]
     Active Substance: AZITHROMYCIN DIHYDRATE
     Indication: NASOPHARYNGITIS
     Route: 065

REACTIONS (5)
  - Dysphagia [Recovered/Resolved]
  - Nasopharyngitis [Recovered/Resolved]
  - Myasthenia gravis crisis [Recovered/Resolved]
  - Eyelid ptosis [Recovered/Resolved]
  - Dyspnoea [Recovered/Resolved]
